FAERS Safety Report 9893378 (Version 1)
Quarter: 2014Q1

REPORT INFORMATION
  Report Type: Report from Study
  Country: US (occurrence: US)
  Receive Date: 20140213
  Receipt Date: 20140213
  Transmission Date: 20141002
  Serious: Yes (Death, Other)
  Sender: FDA-Public Use
  Company Number: US-ROCHE-1335390

PATIENT
  Age: 50 Year
  Sex: Male
  Weight: 113.5 kg

DRUGS (20)
  1. AVASTIN [Suspect]
     Indication: COLORECTAL CANCER METASTATIC
     Route: 042
     Dates: start: 20130214
  2. AVASTIN [Suspect]
     Dosage: 10 MG/KG.
     Route: 042
     Dates: start: 20130214, end: 20130401
  3. XELODA [Suspect]
     Indication: COLORECTAL CANCER METASTATIC
     Route: 065
     Dates: start: 201201
  4. OXALIPLATIN [Suspect]
     Indication: COLORECTAL CANCER METASTATIC
     Route: 065
     Dates: end: 201201
  5. ONDANSETRON [Concomitant]
     Route: 048
  6. ACETAMINOPHEN [Concomitant]
     Route: 048
     Dates: start: 20130221
  7. DEXAMETHASONE SODIUM PHOSPHATE [Concomitant]
     Route: 042
     Dates: start: 20130221
  8. LORATADINE [Concomitant]
     Route: 048
     Dates: start: 20130221
  9. RANITIDINE HCL [Concomitant]
     Route: 042
     Dates: start: 20130221
  10. TRC105 [Concomitant]
     Route: 042
     Dates: start: 20130221
  11. XGEVA [Concomitant]
     Route: 058
  12. ALPRAZOLAM [Concomitant]
     Route: 048
  13. CALENDULA [Concomitant]
  14. MELATONIN [Concomitant]
     Route: 065
  15. CIALIS [Concomitant]
     Route: 048
  16. CLINDAMYCIN PHOSPHATE [Concomitant]
  17. PROMETHAZINE HCL [Concomitant]
  18. ZOLPIDEM TARTRATE [Concomitant]
     Route: 048
  19. CETUXIMAB [Concomitant]
     Route: 065
     Dates: start: 201208, end: 201211
  20. IRINOTECAN [Concomitant]

REACTIONS (18)
  - Disease progression [Fatal]
  - Anaemia [Unknown]
  - Epistaxis [Not Recovered/Not Resolved]
  - Stomatitis [Not Recovered/Not Resolved]
  - Dry mouth [Not Recovered/Not Resolved]
  - Off label use [Unknown]
  - Platelet count decreased [Unknown]
  - Neuropathy peripheral [Unknown]
  - Metastases to bone [Unknown]
  - Skin toxicity [Recovering/Resolving]
  - Rash [Unknown]
  - Constipation [Unknown]
  - Diarrhoea [Unknown]
  - Fatigue [Unknown]
  - Asthenia [Unknown]
  - Weight increased [Unknown]
  - Rash [Unknown]
  - Epistaxis [Unknown]
